FAERS Safety Report 4928862-X (Version None)
Quarter: 2006Q1

REPORT INFORMATION
  Report Type: 
  Country: None (occurrence: None)
  Receive Date: 20060224
  Receipt Date: 20060216
  Transmission Date: 20060701
  Serious: Yes (Hospitalization, Other)
  Sender: FDA-Public Use
  Company Number: HQWYE831316FEB06

PATIENT
  Age: 47 Year
  Sex: Male

DRUGS (8)
  1. RAPAMUNE [Suspect]
     Indication: PROPHYLAXIS AGAINST TRANSPLANT REJECTION
     Dosage: 6 MG 1X PER 1 DAY
     Route: 048
     Dates: start: 20040227
  2. PREDNISONE [Concomitant]
  3. AZATHIOPRINE [Concomitant]
  4. BACTRIM [Concomitant]
  5. RANITIDINE [Concomitant]
  6. NIFEDIPINE [Concomitant]
  7. SIMVASTATIN [Concomitant]
  8. ENALAPRIL MALEATE [Concomitant]

REACTIONS (4)
  - HEADACHE [None]
  - INFECTION [None]
  - MALAISE [None]
  - PYREXIA [None]
